FAERS Safety Report 5501464-2 (Version None)
Quarter: 2007Q4

REPORT INFORMATION
  Report Type: 
  Country: None (occurrence: None)
  Receive Date: 20071023
  Receipt Date: 20060809
  Transmission Date: 20080405
  Serious: Yes (Hospitalization, Other)
  Sender: FDA-Public Use
  Company Number: 29703

PATIENT
  Age: 78 Year
  Sex: Female

DRUGS (13)
  1. CYTARABINE [Suspect]
     Indication: CHRONIC LYMPHOCYTIC LEUKAEMIA
     Dosage: 1G/M2/IV/DAY2-3
     Route: 042
     Dates: start: 20051129, end: 20051202
  2. CYTARABINE [Concomitant]
  3. KEFLEX [Concomitant]
  4. DILTIAZEM HCL [Concomitant]
  5. LEVOTHYROXINE SODIUM [Concomitant]
  6. VALTREX [Concomitant]
  7. MIACALCIN SPRAY [Concomitant]
  8. CYMBALTA [Concomitant]
  9. CARTIA XT [Concomitant]
  10. VALTREX [Concomitant]
  11. OXALIPLATIN [Concomitant]
  12. RITUXAN [Concomitant]
  13. FLUDARABINE PHOSPHATE [Concomitant]

REACTIONS (2)
  - CELLULITIS [None]
  - FEBRILE NEUTROPENIA [None]
